FAERS Safety Report 7236340-0 (Version None)
Quarter: 2010Q4

REPORT INFORMATION
  Report Type: 
  Country: None (occurrence: None)
  Receive Date: 20101130
  Receipt Date: 20090803
  Transmission Date: 20110411
  Serious: Yes (Other)
  Sender: FDA-Public Use
  Company Number: 2008BH003853

PATIENT
  Age: 3 Year
  Sex: Male

DRUGS (1)
  1. ADVATE [Suspect]
     Indication: FACTOR VIII DEFICIENCY
     Dosage: 500 IU;3X A WEEK;IV
     Route: 042
     Dates: start: 20050510

REACTIONS (1)
  - FACTOR VIII INHIBITION [None]
